FAERS Safety Report 8531442-0 (Version None)
Quarter: 2012Q3

REPORT INFORMATION
  Report Type: 
  Country: None (occurrence: None)
  Receive Date: 20120723
  Receipt Date: 20120711
  Transmission Date: 20120928
  Serious: Yes (Hospitalization)
  Sender: FDA-Public Use
  Company Number: JP-VERTEX PHARMACEUTICALS INC.-AE-2012-010462

PATIENT
  Age: 59 Year
  Sex: Male

DRUGS (12)
  1. REBETOL [Concomitant]
     Indication: HEPATITIS C
     Route: 048
     Dates: start: 20120407, end: 20120629
  2. ZOLPIDEM [Concomitant]
     Route: 048
  3. TELAVIC (TELAPREVIR) [Suspect]
     Indication: HEPATITIS C
     Route: 048
     Dates: start: 20120407, end: 20120428
  4. PEGINTERFERON ALFA-2B [Concomitant]
     Indication: HEPATITIS C
     Route: 058
     Dates: start: 20120407, end: 20120622
  5. REBETOL [Concomitant]
     Route: 048
     Dates: start: 20120630
  6. ALLOPURINOL [Concomitant]
     Route: 048
  7. TELAVIC (TELAPREVIR) [Suspect]
     Route: 048
     Dates: start: 20120429, end: 20120623
  8. PEGINTERFERON ALFA-2B [Concomitant]
     Route: 058
     Dates: start: 20120623
  9. ALLOPURINOL [Concomitant]
     Route: 048
  10. ALDACTONE [Concomitant]
     Route: 048
     Dates: start: 20120602, end: 20120623
  11. ADVAIR DISKUS 100/50 [Concomitant]
     Route: 055
  12. ALEROFF [Concomitant]
     Route: 048
     Dates: start: 20120627

REACTIONS (4)
  - MUSCULAR WEAKNESS [None]
  - DECREASED APPETITE [None]
  - RENAL DISORDER [None]
  - ANAEMIA [None]
